FAERS Safety Report 6876805-4 (Version None)
Quarter: 2010Q3

REPORT INFORMATION
  Report Type: 
  Country: None (occurrence: None)
  Receive Date: 20100727
  Receipt Date: 20100714
  Transmission Date: 20110219
  Serious: Yes (Hospitalization)
  Sender: FDA-Public Use
  Company Number: PHHY2010JP44950

PATIENT
  Sex: Female

DRUGS (6)
  1. DICLOFENAC SODIUM [Suspect]
     Indication: CANCER PAIN
     Dosage: 75 MG
     Route: 048
  2. OXYCODONE HCL [Suspect]
     Dosage: 10 MG PER DAY
  3. MAGNESIUM OXIDE [Suspect]
     Dosage: 1.5 G/ DAY
  4. PROCHLORPERAZINE [Suspect]
     Dosage: 15 MG PER DAY
  5. SENNOSIDE [Suspect]
     Dosage: 12 MG PER DAY
  6. DUROTEP [Suspect]
     Route: 062

REACTIONS (4)
  - ABDOMINAL DISTENSION [None]
  - CONSTIPATION [None]
  - PAIN [None]
  - SOMNOLENCE [None]
